FAERS Safety Report 7072936-7 (Version None)
Quarter: 2010Q4

REPORT INFORMATION
  Report Type: 
  Country: None (occurrence: None)
  Receive Date: 20101029
  Receipt Date: 20100402
  Transmission Date: 20110411
  Serious: No
  Sender: FDA-Public Use
  Company Number: A0853218A

PATIENT
  Age: 68 Year
  Sex: Female

DRUGS (6)
  1. ADVAIR DISKUS 100/50 [Suspect]
     Indication: EMPHYSEMA
     Dosage: 1PUFF TWICE PER DAY
     Route: 055
     Dates: start: 20080101
  2. SPIRIVA [Concomitant]
  3. ZYPREXA [Concomitant]
  4. ALBUTEROL INHALER [Concomitant]
  5. CLONOPIN [Concomitant]
  6. PROZAC [Concomitant]

REACTIONS (2)
  - READING DISORDER [None]
  - VISUAL IMPAIRMENT [None]
